FAERS Safety Report 13815262 (Version 1)
Quarter: 2017Q3

REPORT INFORMATION
  Report Type: Spontaneous
  Country: US (occurrence: US)
  Receive Date: 20170729
  Receipt Date: 20170729
  Transmission Date: 20171127
  Serious: Yes (Disabling)
  Sender: FDA-Public Use
  Company Number: None

PATIENT
  Age: 59 Year
  Sex: Female
  Weight: 77.85 kg

DRUGS (10)
  1. MULTI VITAMIN [Concomitant]
     Active Substance: VITAMINS
  2. XANAX [Concomitant]
     Active Substance: ALPRAZOLAM
  3. DYAZIDE [Concomitant]
     Active Substance: HYDROCHLOROTHIAZIDE\TRIAMTERENE
  4. LINZESS [Concomitant]
     Active Substance: LINACLOTIDE
  5. BELVIQ XR [Suspect]
     Active Substance: LORCASERIN HYDROCHLORIDE
     Indication: WEIGHT DECREASED
     Dosage: ?          QUANTITY:30 TABLET(S);?
     Route: 048
  6. METAPROPOL TARTRATE [Concomitant]
  7. POTASSIUM [Concomitant]
     Active Substance: POTASSIUM
  8. VITAMIN C [Concomitant]
     Active Substance: ASCORBIC ACID
  9. PROBIOTICS [Concomitant]
     Active Substance: PROBIOTICS NOS
  10. FISH OIL [Concomitant]
     Active Substance: FISH OIL

REACTIONS (5)
  - Myalgia [None]
  - Depression [None]
  - Gait disturbance [None]
  - Arthralgia [None]
  - Drug effect decreased [None]

NARRATIVE: CASE EVENT DATE: 20170315
